FAERS Safety Report 5282627-0 (Version None)
Quarter: 2007Q1

REPORT INFORMATION
  Report Type: 
  Country: None (occurrence: None)
  Receive Date: 20070331
  Receipt Date: 20070319
  Transmission Date: 20070707
  Serious: Yes (Hospitalization)
  Sender: FDA-Public Use
  Company Number: US-SHR-US-2007-009848

PATIENT
  Age: 60 Year
  Sex: Female

DRUGS (1)
  1. BETASERON [Suspect]
     Indication: MULTIPLE SCLEROSIS
     Dosage: 8 MIU, EVERY 2D
     Route: 058
     Dates: start: 19950614

REACTIONS (5)
  - BALANCE DISORDER [None]
  - CYST [None]
  - FALL [None]
  - GAIT DISTURBANCE [None]
  - SPINAL FRACTURE [None]
